FAERS Safety Report 9175537 (Version 1)
Quarter: 2012Q4

REPORT INFORMATION
  Report Type: 
  Country: US (occurrence: US)
  Receive Date: 20120910
  Receipt Date: 20120910
  Transmission Date: 20130627
  Serious: Yes (Hospitalization, Other)
  Sender: FDA-Public Use
  Company Number: US-RB-044176-12

PATIENT
  Sex: Female

DRUGS (1)
  1. GENERIC BUPRENORPHINE [Suspect]
     Indication: DRUG DEPENDENCE
     Dosage: Dosing details unknown
     Route: 060

REACTIONS (2)
  - Adverse event [Not Recovered/Not Resolved]
  - Exposure during pregnancy [Not Recovered/Not Resolved]
